FAERS Safety Report 6281284-4 (Version None)
Quarter: 2009Q3

REPORT INFORMATION
  Report Type: 
  Country: None (occurrence: None)
  Receive Date: 20090724
  Receipt Date: 20090410
  Transmission Date: 20100115
  Serious: Yes (Hospitalization)
  Sender: FDA-Public Use
  Company Number: A0779237A

PATIENT
  Age: 63 Year
  Sex: Female
  Weight: 102.7 kg

DRUGS (10)
  1. AVANDIA [Suspect]
     Indication: DIABETES MELLITUS
     Dosage: 4MG PER DAY
     Route: 048
     Dates: start: 20031202, end: 20081201
  2. METFORMIN HCL [Concomitant]
  3. ATENOLOL [Concomitant]
  4. METHYLPREDNISOLONE [Concomitant]
  5. LASIX [Concomitant]
     Dates: start: 20030101, end: 20040101
  6. LOVASTATIN [Concomitant]
  7. CYMBALTA [Concomitant]
  8. EFFEXOR [Concomitant]
  9. CEPHALEXIN [Concomitant]
  10. HYDROCODONE BITARTRATE + ACETAMINOPHEN [Concomitant]

REACTIONS (1)
  - CARDIAC FAILURE CONGESTIVE [None]
